FAERS Safety Report 5890177-3 (Version None)
Quarter: 2008Q3

REPORT INFORMATION
  Report Type: 
  Country: None (occurrence: None)
  Receive Date: 20080919
  Receipt Date: 20080910
  Transmission Date: 20090109
  Serious: Yes (Other)
  Sender: FDA-Public Use
  Company Number: US-JNJCH-2008023607

PATIENT
  Age: 46 Year
  Sex: Female
  Weight: 100.7 kg

DRUGS (3)
  1. SUDAFED 12 HOUR [Suspect]
     Indication: SINUS DISORDER
     Dosage: TEXT:2 TABLET ONCE A DAY
     Route: 048
     Dates: start: 20080909, end: 20080910
  2. ALBUTEROL [Concomitant]
     Indication: ASTHMA
     Dosage: TEXT:UNSPECIFIED
     Route: 055
  3. ADVAIR DISKUS 100/50 [Concomitant]
     Indication: ASTHMA
     Dosage: TEXT:UNSPECIFIED
     Route: 065

REACTIONS (2)
  - COUGH [None]
  - HAEMOPTYSIS [None]
